FAERS Safety Report 21914652 (Version 1)
Quarter: 2023Q1

REPORT INFORMATION
  Report Type: Spontaneous
  Country: US (occurrence: US)
  Receive Date: 20230126
  Receipt Date: 20230126
  Transmission Date: 20230418
  Serious: No
  Sender: FDA-Public Use
  Company Number: US-BRISTOL-MYERS SQUIBB COMPANY-2023-012151

PATIENT
  Age: 63 Year
  Sex: Female

DRUGS (2)
  1. SPRYCEL [Suspect]
     Active Substance: DASATINIB
     Indication: Breast cancer
     Route: 048
     Dates: start: 202111
  2. SPRYCEL [Suspect]
     Active Substance: DASATINIB

REACTIONS (2)
  - Confusional state [Unknown]
  - Off label use [Unknown]
